FAERS Safety Report 4588629-1 (Version None)
Quarter: 2005Q1

REPORT INFORMATION
  Report Type: 
  Country: None (occurrence: None)
  Receive Date: 20050214
  Receipt Date: 20050214
  Transmission Date: 20050727
  Serious: Yes (Hospitalization)
  Sender: FDA-Public Use
  Company Number: None

PATIENT
  Age: 47 Year
  Sex: Female
  Weight: 62.6 kg

DRUGS (7)
  1. HYDROMORPHONE [Suspect]
     Indication: MIGRAINE
     Dosage: 6 MG IV OVER 5 HRS
     Route: 042
     Dates: start: 20040722
  2. HYDROMORPHONE [Suspect]
     Indication: PAIN
     Dosage: 6 MG IV OVER 5 HRS
     Route: 042
     Dates: start: 20040722
  3. PROZAC [Concomitant]
  4. SKELAXIN [Concomitant]
  5. NAPROSYN [Concomitant]
  6. BENADRYL [Concomitant]
  7. TORADOL [Concomitant]

REACTIONS (4)
  - DEPRESSED LEVEL OF CONSCIOUSNESS [None]
  - PRURITUS [None]
  - RESPIRATORY DEPRESSION [None]
  - SEDATION [None]
